FAERS Safety Report 7388763-7 (Version None)
Quarter: 2011Q2

REPORT INFORMATION
  Report Type: 
  Country: None (occurrence: None)
  Receive Date: 20110401
  Receipt Date: 20110329
  Transmission Date: 20111010
  Serious: Yes (Death, Hospitalization)
  Sender: FDA-Public Use
  Company Number: UA-ABBOTT-10P-269-0687330-00

PATIENT
  Age: 52 Year
  Sex: Female

DRUGS (3)
  1. METHOTREXATE [Concomitant]
     Indication: RHEUMATOID ARTHRITIS
     Route: 048
     Dates: start: 20100801
  2. METIPRED [Concomitant]
     Indication: RHEUMATOID ARTHRITIS
     Route: 048
     Dates: start: 20100801
  3. HUMIRA [Suspect]
     Indication: RHEUMATOID ARTHRITIS
     Route: 058
     Dates: start: 20101009, end: 20101023

REACTIONS (22)
  - PURPURA [None]
  - POLYMYOSITIS [None]
  - RENAL FAILURE [None]
  - RESPIRATORY FAILURE [None]
  - PULMONARY FIBROSIS [None]
  - BRAIN OEDEMA [None]
  - VASCULITIS CEREBRAL [None]
  - OEDEMA PERIPHERAL [None]
  - DISSEMINATED INTRAVASCULAR COAGULATION [None]
  - PERICARDITIS [None]
  - PULMONARY OEDEMA [None]
  - VASCULITIS NECROTISING [None]
  - WHITE BLOOD CELL COUNT DECREASED [None]
  - PLATELET COUNT DECREASED [None]
  - AUTOIMMUNE DISORDER [None]
  - POLYARTHRITIS [None]
  - HYPOTENSION [None]
  - TOTAL LUNG CAPACITY DECREASED [None]
  - PNEUMONIA [None]
  - RHEUMATOID ARTHRITIS [None]
  - GLOMERULONEPHRITIS [None]
  - PULSE ABSENT [None]
